FAERS Safety Report 6081127-8 (Version None)
Quarter: 2009Q1

REPORT INFORMATION
  Report Type: 
  Country: None (occurrence: None)
  Receive Date: 20090217
  Receipt Date: 20090213
  Transmission Date: 20090719
  Serious: Yes (Death, Hospitalization)
  Sender: FDA-Public Use
  Company Number: DE-ABBOTT-09P-062-0557259-00

PATIENT
  Sex: Male
  Weight: 61 kg

DRUGS (2)
  1. KALETRA [Suspect]
     Indication: HIV INFECTION
     Dosage: FOUR TABLETS DAILY
     Route: 048
     Dates: start: 20080711, end: 20090210
  2. TRUVADA [Concomitant]
     Indication: HIV INFECTION
     Dosage: ONE TABLET DAILY
     Route: 048
     Dates: start: 20080711, end: 20090210

REACTIONS (2)
  - RENAL FAILURE [None]
  - SEPSIS [None]
